FAERS Safety Report 12422499 (Version 2)
Quarter: 2016Q3

REPORT INFORMATION
  Report Type: Spontaneous
  Country: IT (occurrence: IT)
  Receive Date: 20160601
  Receipt Date: 20160709
  Transmission Date: 20161109
  Serious: Yes (Hospitalization, Other)
  Sender: FDA-Public Use
  Company Number: IT-BRISTOL-MYERS SQUIBB COMPANY-BMS-2016-039453

PATIENT
  Age: 69 Year
  Sex: Male

DRUGS (6)
  1. COUMADIN [Suspect]
     Active Substance: WARFARIN SODIUM
     Indication: ATRIAL FIBRILLATION
     Dosage: 5 MG, QD
     Route: 048
     Dates: start: 20160427, end: 20160508
  2. SIMVASTATIN. [Concomitant]
     Active Substance: SIMVASTATIN
     Indication: DYSLIPIDAEMIA
     Dosage: 20 MG, UNK
     Route: 048
     Dates: start: 20150624, end: 20160508
  3. TERAZOSINE                         /00685101/ [Concomitant]
     Indication: HYPERTENSION
     Route: 048
  4. ATENOLOL. [Concomitant]
     Active Substance: ATENOLOL
     Indication: HYPERTENSION
     Dosage: 75 MG, UNK
     Route: 065
     Dates: start: 20160427, end: 20160508
  5. LANOXIN [Concomitant]
     Active Substance: DIGOXIN
     Indication: CARDIAC FAILURE
     Dosage: 0.250 MG, UNK
     Route: 048
     Dates: start: 20160427, end: 20160508
  6. COMBISARTAN [Concomitant]
     Active Substance: HYDROCHLOROTHIAZIDE\VALSARTAN
     Indication: HYPERTENSION
     Dosage: 1 DF, UNK
     Route: 048
     Dates: start: 20150624, end: 20160508

REACTIONS (4)
  - Gastric ulcer [Unknown]
  - Hiatus hernia [Unknown]
  - Haematemesis [Unknown]
  - Transfusion [Unknown]

NARRATIVE: CASE EVENT DATE: 20160508
